FAERS Safety Report 8288143-6 (Version None)
Quarter: 2012Q2

REPORT INFORMATION
  Report Type: 
  Country: None (occurrence: None)
  Receive Date: 20120416
  Receipt Date: 20120411
  Transmission Date: 20120825
  Serious: Yes (Hospitalization)
  Sender: FDA-Public Use
  Company Number: US-BAYER-200938820NA

PATIENT
  Age: 37 Year
  Sex: Female
  Weight: 86.168 kg

DRUGS (6)
  1. YASMIN [Suspect]
     Indication: MENSTRUATION IRREGULAR
     Dosage: UNK
     Route: 048
     Dates: start: 20060101, end: 20070101
  2. YAZ [Suspect]
     Route: 048
  3. NSAID'S [Concomitant]
  4. PLAQUENIL [Concomitant]
     Indication: SYSTEMIC LUPUS ERYTHEMATOSUS
     Dosage: UNK
     Dates: start: 20040101, end: 20100101
  5. PREDNISONE TAB [Concomitant]
  6. IBUPROFEN [Concomitant]

REACTIONS (24)
  - LYMPHADENOPATHY [None]
  - CHEST PAIN [None]
  - INSOMNIA [None]
  - TACHYCARDIA [None]
  - HYPOAESTHESIA [None]
  - DYSPNOEA [None]
  - POST PROCEDURAL HAEMATOMA [None]
  - HYPERCOAGULATION [None]
  - CHOLECYSTECTOMY [None]
  - POST PROCEDURAL HAEMORRHAGE [None]
  - HAEMORRHAGIC ANAEMIA [None]
  - ESSENTIAL HYPERTENSION [None]
  - PULMONARY EMBOLISM [None]
  - OEDEMA PERIPHERAL [None]
  - PROCEDURAL PAIN [None]
  - PARAESTHESIA [None]
  - THROMBOPHLEBITIS [None]
  - DEEP VEIN THROMBOSIS [None]
  - COAGULOPATHY [None]
  - INTERNATIONAL NORMALISED RATIO DECREASED [None]
  - PHLEBITIS [None]
  - THROMBOSIS [None]
  - MENORRHAGIA [None]
  - INFARCTION [None]
